FAERS Safety Report 8667611 (Version 5)
Quarter: 2013Q1

REPORT INFORMATION
  Report Type: Spontaneous
  Country: US (occurrence: US)
  Receive Date: 20120717
  Receipt Date: 20130121
  Transmission Date: 20140127
  Serious: No
  Sender: FDA-Public Use
  Company Number: US-009507513-1207USA001927

PATIENT
  Sex: Male
  Weight: 90.7 kg

DRUGS (1)
  1. ASMANEX TWISTHALER [Suspect]
     Indication: ASTHMA
     Dosage: 1 PUFF, BID
     Route: 048
     Dates: start: 20111122

REACTIONS (2)
  - Drug dose omission [Unknown]
  - Product quality issue [Unknown]
